FAERS Safety Report 13406715 (Version 2)
Quarter: 2017Q2

REPORT INFORMATION
  Report Type: Other
  Country: CO (occurrence: CO)
  Receive Date: 20170405
  Receipt Date: 20170419
  Transmission Date: 20170830
  Serious: Yes (Other)
  Sender: FDA-Public Use
  Company Number: CO-SHIRE-CO201707404

PATIENT
  Age: 15 Year
  Sex: Male
  Weight: 40 kg

DRUGS (2)
  1. ELAPRASE [Suspect]
     Active Substance: IDURSULFASE
     Indication: MUCOPOLYSACCHARIDOSIS II
     Dosage: 18 MG, 1X/WEEK
     Route: 042
     Dates: start: 20090923
  2. BERODUAL [Concomitant]
     Active Substance: FENOTEROL HYDROBROMIDE\IPRATROPIUM BROMIDE
     Indication: RESPIRATORY DISORDER
     Dosage: 10 GTT, OTHER (EVERY 6 HOURS INHALATION)
     Route: 055
     Dates: start: 20170328, end: 20170328

REACTIONS (6)
  - Hyperthermia [Not Recovered/Not Resolved]
  - Tachycardia [Not Recovered/Not Resolved]
  - Oxygen saturation decreased [Not Recovered/Not Resolved]
  - Tachypnoea [Not Recovered/Not Resolved]
  - Cyanosis [Not Recovered/Not Resolved]
  - Cough [Not Recovered/Not Resolved]

NARRATIVE: CASE EVENT DATE: 20170330
